FAERS Safety Report 7531221-7 (Version None)
Quarter: 2011Q2

REPORT INFORMATION
  Report Type: 
  Country: None (occurrence: None)
  Receive Date: 20110531
  Receipt Date: 20110506
  Transmission Date: 20111010
  Serious: Yes (Hospitalization, Other)
  Sender: FDA-Public Use
  Company Number: 2011SP021229

PATIENT
  Age: 52 Year
  Sex: Female

DRUGS (6)
  1. RIBAVIRIN [Suspect]
     Indication: PRODUCT USED FOR UNKNOWN INDICATION
  2. MARAVIROC [Concomitant]
  3. PEG-INTRON [Suspect]
     Indication: PRODUCT USED FOR UNKNOWN INDICATION
  4. BOCEPREVIR (SCH-503034) [Suspect]
     Indication: HEPATITIS C
     Dosage: 800 MG;QD;PO
     Route: 048
     Dates: start: 20110412, end: 20110505
  5. DARUNAVIR ETHANOLATE [Concomitant]
  6. LAMIVUDINE [Concomitant]

REACTIONS (11)
  - DYSPHAGIA [None]
  - STOMATITIS [None]
  - LOWER RESPIRATORY TRACT INFECTION [None]
  - PANCYTOPENIA [None]
  - STAPHYLOCOCCAL INFECTION [None]
  - MOUTH ULCERATION [None]
  - NEUTROPENIA [None]
  - ANAEMIA [None]
  - OTITIS MEDIA [None]
  - PHARYNGITIS [None]
  - MUCOSAL INFLAMMATION [None]
